FAERS Safety Report 6965998-6 (Version None)
Quarter: 2010Q3

REPORT INFORMATION
  Report Type: 
  Country: None (occurrence: None)
  Receive Date: 20100823
  Receipt Date: 20100513
  Transmission Date: 20110219
  Serious: No
  Sender: FDA-Public Use
  Company Number: 011994

PATIENT
  Sex: Female
  Weight: 49.1 kg

DRUGS (3)
  1. CIMZIA [Suspect]
     Indication: IRRITABLE BOWEL SYNDROME
     Dosage: (200 MG 1X/2 WEEKS SUBCUTANEOUS) ; (200 MG 1X/2 WEEKS SUBCUTANEOUS)
     Route: 058
     Dates: start: 20100428, end: 20100101
  2. CIMZIA [Suspect]
     Indication: IRRITABLE BOWEL SYNDROME
     Dosage: (200 MG 1X/2 WEEKS SUBCUTANEOUS) ; (200 MG 1X/2 WEEKS SUBCUTANEOUS)
     Route: 058
     Dates: start: 20100512
  3. HUMIRA [Concomitant]

REACTIONS (3)
  - DRUG ADMINISTERED AT INAPPROPRIATE SITE [None]
  - ERYTHEMA [None]
  - URTICARIA [None]
